FAERS Safety Report 5701775-1 (Version None)
Quarter: 2008Q2

REPORT INFORMATION
  Report Type: 
  Country: None (occurrence: None)
  Receive Date: 20080410
  Receipt Date: 20080410
  Transmission Date: 20081010
  Serious: No
  Sender: FDA-Public Use
  Company Number: None

PATIENT
  Age: 68 Year
  Sex: Female
  Weight: 64.8644 kg

DRUGS (1)
  1. VICODIN ES [Suspect]
     Indication: NEURALGIA
     Dosage: ABOVE 2 TABS EVERY 6 MONTHS
     Dates: start: 20080305, end: 20080306

REACTIONS (6)
  - EMOTIONAL DISORDER [None]
  - FEELING ABNORMAL [None]
  - INFLUENZA LIKE ILLNESS [None]
  - MALAISE [None]
  - NAUSEA [None]
  - VOMITING [None]
